FAERS Safety Report 7064779-5 (Version None)
Quarter: 2010Q4

REPORT INFORMATION
  Report Type: 
  Country: None (occurrence: None)
  Receive Date: 20101027
  Receipt Date: 19851212
  Transmission Date: 20110411
  Serious: Yes (Death, Life-Threatening, Hospitalization, Disabling)
  Sender: FDA-Public Use
  Company Number: US-ROCHE-850201581001

PATIENT
  Sex: Female

DRUGS (4)
  1. CEFTRIAXONE SODIUM [Suspect]
     Indication: PERITONITIS
     Route: 042
     Dates: start: 19851202
  2. ZANTAC [Concomitant]
     Route: 065
  3. SPIRONOLACTONE [Concomitant]
     Route: 065
  4. BENADRYL [Concomitant]
     Route: 065

REACTIONS (2)
  - HAEMOLYTIC ANAEMIA [None]
  - HEPATIC FAILURE [None]
